FAERS Safety Report 23794017 (Version 1)
Quarter: 2024Q2

REPORT INFORMATION
  Report Type: Spontaneous
  Country: ES (occurrence: ES)
  Receive Date: 20240429
  Receipt Date: 20240429
  Transmission Date: 20240716
  Serious: Yes (Hospitalization, Disabling, Other)
  Sender: FDA-Public Use
  Company Number: ES-ROCHE-3166376

PATIENT
  Age: 61 Year
  Sex: Male
  Weight: 86 kg

DRUGS (27)
  1. ATEZOLIZUMAB [Suspect]
     Active Substance: ATEZOLIZUMAB
     Indication: Small cell lung cancer extensive stage
     Dosage: 1200 MG, Q3W (ON 05/SEP/2022, 04/OCT/2022, 28/OCT/2022, THE PATIENT RECEIVED MOST RECENT DOSE OF ATE
     Route: 042
     Dates: start: 20220620
  2. ATEZOLIZUMAB [Suspect]
     Active Substance: ATEZOLIZUMAB
     Dosage: 1200 MG, Q3W (PATIENT RECEIVED MOST RECENT DOSE)
     Route: 042
     Dates: start: 20220905
  3. ATEZOLIZUMAB [Suspect]
     Active Substance: ATEZOLIZUMAB
     Dosage: 1200 MG (PATIENT RECEIVED MOST RECENT DOSE)
     Route: 042
     Dates: start: 20221004
  4. ATEZOLIZUMAB [Suspect]
     Active Substance: ATEZOLIZUMAB
     Dosage: 1200 MG (PATIENT RECEIVED MOST RECENT DOSE)
     Route: 042
     Dates: start: 20221028
  5. CARBOPLATIN [Suspect]
     Active Substance: CARBOPLATIN
     Indication: Small cell lung cancer extensive stage
     Dosage: 572 MG
     Route: 065
     Dates: start: 20220620
  6. ETOPOSIDE [Suspect]
     Active Substance: ETOPOSIDE
     Dosage: 160 MG
     Route: 042
     Dates: start: 20220620
  7. ETOPOSIDE [Suspect]
     Active Substance: ETOPOSIDE
     Indication: Small cell lung cancer extensive stage
     Dosage: 600 MG
     Route: 048
     Dates: start: 20220620
  8. BUDESONIDE [Concomitant]
     Active Substance: BUDESONIDE
     Dosage: QD
     Route: 065
     Dates: start: 20220818
  9. BUDESONIDE [Concomitant]
     Active Substance: BUDESONIDE
     Indication: Product used for unknown indication
     Dosage: UNK UNK, QD
     Route: 065
     Dates: start: 20220818
  10. CRESTOR [Concomitant]
     Active Substance: ROSUVASTATIN CALCIUM
     Dosage: QD
     Route: 065
  11. CRESTOR [Concomitant]
     Active Substance: ROSUVASTATIN CALCIUM
     Indication: Product used for unknown indication
     Dosage: UNK UNK, QD
     Route: 065
  12. DEXAMETHASONE [Concomitant]
     Active Substance: DEXAMETHASONE
     Indication: Product used for unknown indication
     Dosage: 12 MG, QD
     Route: 065
     Dates: start: 20220801, end: 20220801
  13. PENTOXIFYLLINE [Concomitant]
     Active Substance: PENTOXIFYLLINE
     Indication: Product used for unknown indication
     Dosage: UNK UNK, QD
     Route: 065
  14. PENTOXIFYLLINE [Concomitant]
     Active Substance: PENTOXIFYLLINE
     Route: 065
     Dates: start: 20220818
  15. NETUPITANT [Concomitant]
     Active Substance: NETUPITANT
     Indication: Product used for unknown indication
     Dosage: 300 MG
     Route: 065
     Dates: start: 20220801, end: 20220801
  16. NETUPITANT [Concomitant]
     Active Substance: NETUPITANT
     Dosage: 300.000MG
     Route: 065
     Dates: start: 20220801, end: 20220801
  17. NETUPITANT [Concomitant]
     Active Substance: NETUPITANT
     Dosage: 300.000MG
     Route: 065
     Dates: start: 20220801, end: 20220801
  18. NETUPITANT [Concomitant]
     Active Substance: NETUPITANT
     Dosage: 300.000MG
     Route: 065
     Dates: start: 20220801, end: 20220801
  19. NETUPITANT [Concomitant]
     Active Substance: NETUPITANT
     Dosage: 300.000MG
     Route: 065
     Dates: start: 20220801, end: 20220801
  20. PACLITAXEL [Concomitant]
     Active Substance: PACLITAXEL
     Indication: Product used for unknown indication
     Dosage: UNK
     Route: 065
     Dates: start: 20230203, end: 20230404
  21. PALONOSETRON [Concomitant]
     Active Substance: PALONOSETRON
     Indication: Product used for unknown indication
     Dosage: 0.5 MG
     Route: 065
     Dates: start: 20220801, end: 20220801
  22. PALONOSETRON [Concomitant]
     Active Substance: PALONOSETRON
     Dosage: 0.500MG
     Route: 065
     Dates: start: 20220801, end: 20220801
  23. PENTOXIFYLLINE [Concomitant]
     Active Substance: PENTOXIFYLLINE
     Indication: Product used for unknown indication
     Dosage: UNK (0.5 DAY)
     Route: 065
     Dates: start: 20220818
  24. ROSUVASTATIN [Concomitant]
     Active Substance: ROSUVASTATIN
     Indication: Product used for unknown indication
     Dosage: UNK UNK, QD
     Route: 065
     Dates: start: 20220818
  25. SYMBICORT [Concomitant]
     Active Substance: BUDESONIDE\FORMOTEROL FUMARATE DIHYDRATE
     Indication: Product used for unknown indication
     Dosage: UNK (0.5 DAY)
     Route: 065
  26. TOPOTECAN [Concomitant]
     Active Substance: TOPOTECAN HYDROCHLORIDE
     Indication: Product used for unknown indication
     Dosage: UNK
     Route: 065
     Dates: start: 20221111, end: 20230113
  27. TOPOTECAN [Concomitant]
     Active Substance: TOPOTECAN HYDROCHLORIDE
     Route: 065
     Dates: start: 20221111, end: 20230113

REACTIONS (10)
  - Respiratory tract infection [Recovered/Resolved]
  - Neutropenia [Recovered/Resolved]
  - Neutropenia [Recovered/Resolved]
  - Anaemia [Recovered/Resolved]
  - Thrombocytopenia [Recovered/Resolved]
  - Thrombocytopenia [Recovered/Resolved]
  - Pneumonia pseudomonal [Recovered/Resolved]
  - Haemoptysis [Recovered/Resolved]
  - Diarrhoea [Recovered/Resolved]
  - Asthenia [Recovering/Resolving]

NARRATIVE: CASE EVENT DATE: 20220711
